FAERS Safety Report 7113038-0 (Version None)
Quarter: 2010Q4

REPORT INFORMATION
  Report Type: 
  Country: None (occurrence: None)
  Receive Date: 20101119
  Receipt Date: 20101109
  Transmission Date: 20110411
  Serious: Yes (Hospitalization)
  Sender: FDA-Public Use
  Company Number: IT-JNJFOC-20101103573

PATIENT
  Sex: Male

DRUGS (6)
  1. RISPERDAL [Suspect]
     Indication: SCHIZOPHRENIA
     Route: 030
  2. RISPERDAL [Suspect]
     Route: 030
  3. RISPERDAL [Suspect]
     Route: 030
  4. RISPERIDONE [Suspect]
     Indication: SCHIZOPHRENIA
     Route: 048
  5. CLOPIXOL [Suspect]
     Indication: ILL-DEFINED DISORDER
     Route: 030
  6. ZYPREXA [Suspect]
     Indication: ILL-DEFINED DISORDER
     Route: 048

REACTIONS (6)
  - AGGRESSION [None]
  - DRUG DOSE OMISSION [None]
  - HYPERTONIA [None]
  - PYREXIA [None]
  - TREMOR [None]
  - URINARY TRACT INFECTION [None]
